FAERS Safety Report 7931866-6 (Version None)
Quarter: 2011Q4

REPORT INFORMATION
  Report Type: 
  Country: None (occurrence: None)
  Receive Date: 20111121
  Receipt Date: 20111117
  Transmission Date: 20120403
  Serious: Yes (Other)
  Sender: FDA-Public Use
  Company Number: US-BAYER-2011-111716

PATIENT
  Age: 31 Year
  Sex: Female
  Weight: 104 kg

DRUGS (2)
  1. CHOLESTYRAMINE [Concomitant]
  2. BAYER EXTRA STRENGTH BACK + BODY PAIN [Suspect]
     Indication: BACK PAIN
     Dosage: 2 DF, QD
     Route: 048
     Dates: start: 20111115, end: 20111115

REACTIONS (5)
  - PRURITUS [None]
  - URTICARIA [None]
  - LOSS OF CONSCIOUSNESS [None]
  - HYPERSENSITIVITY [None]
  - DIZZINESS [None]
